FAERS Safety Report 7304289-0 (Version None)
Quarter: 2011Q1

REPORT INFORMATION
  Report Type: 
  Country: None (occurrence: None)
  Receive Date: 20110221
  Receipt Date: 20110214
  Transmission Date: 20110831
  Serious: Yes (Disabling, Other)
  Sender: FDA-Public Use
  Company Number: US-BAYER-2011-015686

PATIENT
  Sex: Female

DRUGS (4)
  1. YAZ [Suspect]
     Indication: PRODUCT USED FOR UNKNOWN INDICATION
     Dosage: UNK
     Dates: start: 20040301, end: 20060701
  2. YASMIN [Suspect]
     Indication: PRODUCT USED FOR UNKNOWN INDICATION
     Dosage: UNK
     Dates: start: 20040301, end: 20060701
  3. YASMIN [Suspect]
     Dosage: UNK
     Dates: start: 20070901, end: 20080601
  4. YAZ [Suspect]
     Dosage: UNK
     Dates: start: 20070901, end: 20080601

REACTIONS (3)
  - GALLBLADDER DISORDER [None]
  - PANCREATITIS [None]
  - PAIN [None]
